FAERS Safety Report 4363273-X (Version None)
Quarter: 2004Q2

REPORT INFORMATION
  Report Type: 
  Country: None (occurrence: None)
  Receive Date: 20040518
  Receipt Date: 20040503
  Transmission Date: 20050107
  Serious: Yes (Death)
  Sender: FDA-Public Use
  Company Number: 206286

PATIENT
  Age: 37 Year
  Sex: Female

DRUGS (6)
  1. MABTHERA (RITUXIMAB) CONC FOR SOLUTION FOR INFUSION [Suspect]
     Indication: B-CELL LYMPHOMA
     Dosage: 700 MG, INTRAVENOUS
     Route: 042
     Dates: start: 20050305, end: 20040305
  2. SOLU-MEDROL [Suspect]
     Dosage: 20 MG, QD, INTRAVENOUS
     Route: 042
     Dates: start: 20040302, end: 20040302
  3. CYCLOPHOSPHAMIDE [Suspect]
     Dosage: 2G, QD, INTRAVENOUS
     Route: 042
     Dates: start: 20040302, end: 20040302
  4. ADRIAMYCIN(DOXORUBICIN, DOXORUBICI HYDROCHLORIDE) [Suspect]
     Dosage: 140 MG, QD, INTRAVENOUS
     Route: 042
     Dates: start: 20040305, end: 20040305
  5. PREDNISONE TAB [Concomitant]
  6. ARAVA [Concomitant]

REACTIONS (3)
  - CULTURE URINE POSITIVE [None]
  - ESCHERICHIA SEPSIS [None]
  - SEPTIC SHOCK [None]
